FAERS Safety Report 18393728 (Version 1)
Quarter: 2020Q4

REPORT INFORMATION
  Report Type: Spontaneous
  Country: HR (occurrence: HR)
  Receive Date: 20201016
  Receipt Date: 20201016
  Transmission Date: 20210114
  Serious: Yes (Death, Hospitalization, Other)
  Sender: FDA-Public Use
  Company Number: HR-ABBVIE-20K-216-3610896-00

PATIENT
  Age: 64 Year
  Sex: Male

DRUGS (2)
  1. DUODOPA [Suspect]
     Active Substance: CARBIDOPA\LEVODOPA
  2. DUODOPA [Suspect]
     Active Substance: CARBIDOPA\LEVODOPA
     Indication: PARKINSON^S DISEASE
     Dosage: MODIFICATION OF DOSE WHEN HOSPTALIZED IN JUN 2020 DUE TO AES.HIGHER LCIG DOSES INTRODUCED
     Route: 050
     Dates: start: 201901, end: 202009

REACTIONS (17)
  - Cardiac failure [Unknown]
  - Pulmonary embolism [Unknown]
  - Pseudomembranous colitis [Unknown]
  - Fall [Unknown]
  - Pyrexia [Fatal]
  - Anaemia [Unknown]
  - Device expulsion [Unknown]
  - Decubitus ulcer [Unknown]
  - Hypotension [Unknown]
  - Clostridium difficile infection [Unknown]
  - Parkinson^s disease [Recovered/Resolved]
  - Autonomic nervous system imbalance [Unknown]
  - Parkinson^s disease [Not Recovered/Not Resolved]
  - Urosepsis [Unknown]
  - Mobility decreased [Unknown]
  - General physical health deterioration [Fatal]
  - Device dislocation [Unknown]

NARRATIVE: CASE EVENT DATE: 2020
